FAERS Safety Report 8261912-4 (Version None)
Quarter: 2012Q2

REPORT INFORMATION
  Report Type: 
  Country: None (occurrence: None)
  Receive Date: 20120402
  Receipt Date: 20120323
  Transmission Date: 20120825
  Serious: Yes (Hospitalization)
  Sender: FDA-Public Use
  Company Number: 2012SP015940

PATIENT
  Age: 62 Year
  Sex: Female

DRUGS (11)
  1. LEVOTHYROXINE SODIUM [Concomitant]
  2. ENALAPRIL MALEATE [Concomitant]
  3. CELECTOL [Concomitant]
  4. PREDNISOLONE [Concomitant]
  5. INCIVO [Concomitant]
  6. REBETOL [Suspect]
     Indication: HEPATIC CIRRHOSIS
     Dosage: PO
     Route: 048
     Dates: start: 20110526, end: 20110619
  7. PAROXETINE HYDROCHLORIDE [Concomitant]
  8. URSODIOL [Concomitant]
  9. ZOLPIDEM TARTRATE [Concomitant]
  10. VIRAFERONPEG [Suspect]
     Indication: HEPATIC CIRRHOSIS
     Dosage: SC
     Route: 058
     Dates: start: 20110526, end: 20110619
  11. ALDACTAZINE [Concomitant]

REACTIONS (6)
  - DEPRESSED MOOD [None]
  - GENERAL PHYSICAL HEALTH DETERIORATION [None]
  - STUPOR [None]
  - LACRIMATION INCREASED [None]
  - ASTHENIA [None]
  - CATATONIA [None]
